FAERS Safety Report 15505511 (Version 3)
Quarter: 2019Q1

REPORT INFORMATION
  Report Type: Report from Study
  Country: US (occurrence: US)
  Receive Date: 20181016
  Receipt Date: 20190107
  Transmission Date: 20190417
  Serious: Yes (Other)
  Sender: FDA-Public Use
  Company Number: US-ROCHE-2197429

PATIENT
  Age: 50 Year
  Sex: Female
  Weight: 56.11 kg

DRUGS (8)
  1. TRASTUZUMAB. [Suspect]
     Active Substance: TRASTUZUMAB
     Indication: HER-2 POSITIVE BREAST CANCER
     Dosage: 8 MILLIGRAM PER KILOGRAM (MG/KG) LOADING DOSE THEN 6 MG/KG?MOST RECENT DOSE OF TRASTUZUMAB PRIOR TO
     Route: 042
     Dates: start: 20180404
  2. VITAMIN D3 [Concomitant]
     Active Substance: CHOLECALCIFEROL
     Route: 065
     Dates: start: 20180301
  3. COENZYME Q10 [Concomitant]
     Active Substance: UBIDECARENONE
     Route: 065
     Dates: start: 20180808
  4. CLARITIN [Concomitant]
     Active Substance: LORATADINE
     Route: 065
     Dates: start: 20180901
  5. ATEZOLIZUMAB. [Suspect]
     Active Substance: ATEZOLIZUMAB
     Indication: HER-2 POSITIVE BREAST CANCER
     Dosage: DATE OF LAST DOSE OF ATEZOLIZUMAB PRIOR TO THE ONSE OF EVENT 24/APR/2018
     Route: 042
     Dates: start: 20180404
  6. PERTUZUMAB. [Suspect]
     Active Substance: PERTUZUMAB
     Indication: HER-2 POSITIVE BREAST CANCER
     Dosage: LOADING DOSE 840 MG THEN 420 MG?MOST RECENT DOSE OF PERTUZUMAB PRIOR TO ONSET OF EVENT 21/SEP/2018
     Route: 042
     Dates: start: 20180404
  7. CARBOPLATIN. [Suspect]
     Active Substance: CARBOPLATIN
     Indication: HER-2 POSITIVE BREAST CANCER
     Dosage: AREA UNDER THE CURVE (AUC) OF 6 MILLIGRAMS PER MILLILITER*MIN (MG/ML*MIN)  VIA AN IV INFUSION ON DAY
     Route: 042
     Dates: start: 20180516
  8. DOCETAXEL. [Suspect]
     Active Substance: DOCETAXEL
     Indication: HER-2 POSITIVE BREAST CANCER
     Dosage: FOR 6 CYCLES?MOST RECENT DOSE OF DOCETAXEL PRIOR TO ONSET OF EVENT 29/AUG/2018
     Route: 042
     Dates: start: 20180516

REACTIONS (1)
  - Acute kidney injury [Recovered/Resolved]

NARRATIVE: CASE EVENT DATE: 20181002
